FAERS Safety Report 10170299 (Version 1)
Quarter: 2014Q2

REPORT INFORMATION
  Report Type: Spontaneous
  Country: US (occurrence: US)
  Receive Date: 20140513
  Receipt Date: 20140513
  Transmission Date: 20141212
  Serious: No
  Sender: FDA-Public Use
  Company Number: US-TEVA-481351USA

PATIENT
  Age: 23 Year
  Sex: Female
  Weight: 76.73 kg

DRUGS (1)
  1. PLAN B ONE-STEP [Suspect]
     Indication: POST COITAL CONTRACEPTION
     Dosage: 1.5 MILLIGRAM DAILY;
     Route: 048
     Dates: start: 20140228, end: 20140228

REACTIONS (4)
  - Breast tenderness [Recovered/Resolved]
  - Menstruation irregular [Recovered/Resolved]
  - Pregnancy [Unknown]
  - Maternal exposure before pregnancy [Unknown]
